FAERS Safety Report 19368570 (Version 1)
Quarter: 2021Q2

REPORT INFORMATION
  Report Type: Spontaneous
  Country: BR (occurrence: BR)
  Receive Date: 20210602
  Receipt Date: 20210602
  Transmission Date: 20210717
  Serious: Yes (Other)
  Sender: FDA-Public Use
  Company Number: BR-SA-2021SA174911

PATIENT
  Sex: Female
  Weight: 3.01 kg

DRUGS (1)
  1. CLEXANE [Suspect]
     Active Substance: ENOXAPARIN SODIUM
     Dosage: 40 MG
     Route: 063

REACTIONS (2)
  - Hypoglycaemia neonatal [Unknown]
  - Exposure via breast milk [Unknown]
